FAERS Safety Report 5410873-1 (Version None)
Quarter: 2007Q3

REPORT INFORMATION
  Report Type: 
  Country: None (occurrence: None)
  Receive Date: 20070810
  Receipt Date: 20070808
  Transmission Date: 20080115
  Serious: Yes (Death, Other)
  Sender: FDA-Public Use
  Company Number: PHNU2007DE02777

PATIENT
  Age: 71 Year
  Sex: Female
  Weight: 52 kg

DRUGS (4)
  1. BONDRONAT [Suspect]
     Indication: METASTASES TO BONE
     Dosage: 6 MG, QMO
     Route: 065
     Dates: start: 20060501
  2. FORTECORTIN [Concomitant]
     Indication: TUMOUR PAIN
     Dosage: 2 MG, QD
     Route: 065
     Dates: start: 20050401, end: 20060701
  3. HERCEPTIN [Concomitant]
     Dosage: 150 MG, QD
     Route: 065
     Dates: start: 20050401, end: 20060701
  4. ZOMETA [Suspect]
     Indication: METASTASES TO BONE
     Dosage: 4 MG, QMO
     Route: 042
     Dates: start: 20050501, end: 20060501

REACTIONS (9)
  - BREAST CANCER METASTATIC [None]
  - MULTI-ORGAN FAILURE [None]
  - OSTEITIS [None]
  - OSTEOMYELITIS [None]
  - OSTEONECROSIS [None]
  - OSTEOTOMY [None]
  - PRIMARY SEQUESTRUM [None]
  - SINGLE PHOTON EMISSION COMPUTERISED TOMOGRAM ABNORMAL [None]
  - TOOTHACHE [None]
